FAERS Safety Report 22277870 (Version 2)
Quarter: 2023Q2

REPORT INFORMATION
  Report Type: Spontaneous
  Country: US (occurrence: US)
  Receive Date: 20230503
  Receipt Date: 20230505
  Transmission Date: 20230721
  Serious: No
  Sender: FDA-Public Use
  Company Number: US-002147023-NVSC2023US099484

PATIENT
  Sex: Female

DRUGS (1)
  1. TIMOLOL MALEATE [Suspect]
     Active Substance: TIMOLOL MALEATE
     Indication: Product used for unknown indication
     Dosage: 10 ML LDP US
     Route: 065

REACTIONS (4)
  - Swelling of eyelid [Unknown]
  - Swelling face [Unknown]
  - Erythema [Unknown]
  - Rash [Unknown]
